FAERS Safety Report 7192361-8 (Version None)
Quarter: 2010Q4

REPORT INFORMATION
  Report Type: 
  Country: None (occurrence: None)
  Receive Date: 20101223
  Receipt Date: 20101215
  Transmission Date: 20110411
  Serious: Yes (Hospitalization)
  Sender: FDA-Public Use
  Company Number: IE-JNJFOC-20101205857

PATIENT
  Age: 6 Decade
  Sex: Female

DRUGS (2)
  1. RISPERIDONE [Suspect]
     Indication: PRODUCT USED FOR UNKNOWN INDICATION
     Route: 048
  2. OLANZAPINE [Concomitant]
     Indication: ILL-DEFINED DISORDER
     Route: 065

REACTIONS (3)
  - CEREBROVASCULAR ACCIDENT [None]
  - DYSKINESIA [None]
  - GASTROINTESTINAL DISORDER [None]
